FAERS Safety Report 6864460-9 (Version None)
Quarter: 2010Q3

REPORT INFORMATION
  Report Type: 
  Country: None (occurrence: None)
  Receive Date: 20100721
  Receipt Date: 20080324
  Transmission Date: 20110219
  Serious: Yes (Other)
  Sender: FDA-Public Use
  Company Number: US-PFIZER INC-2008027173

PATIENT
  Sex: Female
  Weight: 74.8 kg

DRUGS (8)
  1. CHANTIX [Suspect]
     Indication: SMOKING CESSATION THERAPY
     Dosage: EVERY DAY
     Dates: start: 20080212, end: 20080301
  2. TENORMIN [Concomitant]
  3. LIBRIUM [Concomitant]
  4. LEXAPRO [Concomitant]
  5. ZOCOR [Concomitant]
  6. VALSARTAN [Concomitant]
  7. ACETYLSALICYLIC ACID [Concomitant]
  8. PEPCID [Concomitant]

REACTIONS (1)
  - MUSCLE SPASMS [None]
